FAERS Safety Report 4279218-7 (Version None)
Quarter: 2004Q1

REPORT INFORMATION
  Report Type: 
  Country: None (occurrence: None)
  Receive Date: 20040127
  Receipt Date: 20040114
  Transmission Date: 20041129
  Serious: Yes (Hospitalization)
  Sender: FDA-Public Use
  Company Number: DE-BRISTOL-MYERS SQUIBB COMPANY-12481164

PATIENT
  Age: 74 Year
  Sex: Female
  Weight: 88 kg

DRUGS (3)
  1. TAXOL [Suspect]
     Indication: OVARIAN CANCER
     Dosage: FIRST DOSE: 18-JUN-2003
     Route: 042
     Dates: start: 20030820, end: 20030820
  2. RIBOCARBO [Suspect]
     Indication: OVARIAN CANCER
     Dosage: FIRST DOSE: 18-JUN-2003
     Route: 042
     Dates: start: 20030820, end: 20030820
  3. GEMZAR [Suspect]
     Indication: OVARIAN CANCER
     Dosage: DUE TO EVENT: FOR NEXT CYCLE-^DOSE OMITTED.^
     Route: 042
     Dates: start: 20030820, end: 20030820

REACTIONS (4)
  - ANOREXIA [None]
  - ASTHENIA [None]
  - GENERAL PHYSICAL HEALTH DETERIORATION [None]
  - HAEMOGLOBIN DECREASED [None]
